FAERS Safety Report 7253582 (Version 3)
Quarter: 2014Q2

REPORT INFORMATION
  Report Type: Spontaneous
  Country: US (occurrence: US)
  Receive Date: 20100124
  Receipt Date: 20140622
  Transmission Date: 20141212
  Serious: Yes (Other)
  Sender: FDA-Public Use
  Company Number: US-ALEXION-A200901087

PATIENT
  Sex: Female

DRUGS (3)
  1. SOLIRIS 300MG [Suspect]
     Indication: PAROXYSMAL NOCTURNAL HAEMOGLOBINURIA
     Dosage: 600 MG, UNK
     Dates: start: 200704, end: 200704
  2. SOLIRIS 300MG [Suspect]
     Dosage: 900 MG, UNK
     Route: 042
     Dates: start: 20071212
  3. EXJADE [Suspect]
     Indication: BLOOD IRON INCREASED

REACTIONS (5)
  - Transfusion [Unknown]
  - Blood iron increased [Unknown]
  - Back injury [Unknown]
  - Malaise [Unknown]
  - Haemolysis [Unknown]
